FAERS Safety Report 19758432 (Version 1)
Quarter: 2021Q3

REPORT INFORMATION
  Report Type: Spontaneous
  Country: GB (occurrence: GB)
  Receive Date: 20210828
  Receipt Date: 20210828
  Transmission Date: 20211014
  Serious: Yes (Other)
  Sender: FDA-Public Use
  Company Number: NVSC2021GB188830

PATIENT
  Age: 4 Month
  Sex: Male

DRUGS (1)
  1. ZOLGENSMA [Suspect]
     Active Substance: ONASEMNOGENE ABEPARVOVEC-XIOI
     Indication: PRODUCT USED FOR UNKNOWN INDICATION
     Dosage: UNK
     Route: 042
     Dates: start: 20210622

REACTIONS (3)
  - Electrocardiogram ST segment elevation [Unknown]
  - Troponin I increased [Unknown]
  - Deformity thorax [Unknown]

NARRATIVE: CASE EVENT DATE: 20210816
